FAERS Safety Report 17839391 (Version 1)
Quarter: 2020Q2

REPORT INFORMATION
  Report Type: Spontaneous
  Country: CA (occurrence: CA)
  Receive Date: 20200529
  Receipt Date: 20200529
  Transmission Date: 20200714
  Serious: Yes (Other)
  Sender: FDA-Public Use
  Company Number: CA-BAXTER-2020BAX010765

PATIENT

DRUGS (1)
  1. 0.9% SODIUM CHLORIDE INJECTION [Suspect]
     Active Substance: SODIUM CHLORIDE
     Indication: DEVICE PRIMING
     Dosage: DOSAGE FORM: SOLUTION INTRAVENOUS
     Route: 042

REACTIONS (2)
  - Device physical property issue [Unknown]
  - Haemorrhage [Unknown]
